FAERS Safety Report 7752884-7 (Version None)
Quarter: 2011Q3

REPORT INFORMATION
  Report Type: 
  Country: None (occurrence: None)
  Receive Date: 20110913
  Receipt Date: 20110831
  Transmission Date: 20111222
  Serious: Yes (Other)
  Sender: FDA-Public Use
  Company Number: TCI2011A03898

PATIENT
  Age: 71 Year
  Sex: Male

DRUGS (2)
  1. ACTOS [Suspect]
     Indication: DIABETES MELLITUS
     Dosage: 15,  30 MG (15, 30 MG, 1 IN 1 D), PER ORAL
     Route: 048
     Dates: start: 20050725, end: 20050821
  2. ACTOS [Suspect]
     Indication: DIABETES MELLITUS
     Dosage: 15,  30 MG (15, 30 MG, 1 IN 1 D), PER ORAL
     Route: 048
     Dates: start: 20050822, end: 20110630

REACTIONS (2)
  - BLADDER CANCER [None]
  - GLUCOSE URINE PRESENT [None]
